FAERS Safety Report 7349449-8 (Version None)
Quarter: 2011Q1

REPORT INFORMATION
  Report Type: 
  Country: None (occurrence: None)
  Receive Date: 20110303
  Receipt Date: 20110225
  Transmission Date: 20110831
  Serious: Yes (Death)
  Sender: FDA-Public Use
  Company Number: DSA_45079_2011

PATIENT
  Sex: Male

DRUGS (5)
  1. XENAZINE [Suspect]
     Indication: PRODUCT USED FOR UNKNOWN INDICATION
     Dosage: (1 + 1/2, 25 MG TABLET, THREE TIMES DAILY ORAL)
     Route: 048
     Dates: start: 20091001, end: 20101201
  2. AMBIEN [Concomitant]
  3. LEXAPRO [Concomitant]
  4. MIRAPEX [Concomitant]
  5. CLONAZEPAM [Concomitant]

REACTIONS (1)
  - DEATH [None]
